FAERS Safety Report 5146565-6 (Version None)
Quarter: 2006Q4

REPORT INFORMATION
  Report Type: 
  Country: None (occurrence: None)
  Receive Date: 20061109
  Receipt Date: 20061030
  Transmission Date: 20070319
  Serious: Yes (Hospitalization, Other)
  Sender: FDA-Public Use
  Company Number: AT-BRISTOL-MYERS SQUIBB COMPANY-13561725

PATIENT
  Age: 37 Year
  Sex: Male

DRUGS (8)
  1. ABILIFY [Suspect]
     Indication: PERSONALITY DISORDER
     Dosage: 15-30 MG DAILY
     Route: 048
     Dates: start: 20060919, end: 20061004
  2. CONVULEX [Suspect]
     Dates: start: 20060928, end: 20060930
  3. LEPONEX [Suspect]
     Route: 048
     Dates: start: 20060928, end: 20060930
  4. NOZINAN [Suspect]
     Dates: start: 20060925, end: 20061002
  5. SEROQUEL [Suspect]
     Dates: start: 20060926, end: 20061002
  6. AKINETON [Suspect]
     Dates: start: 20060929, end: 20061009
  7. BENZODIAZEPINE [Suspect]
     Dosage: 20-80MG DAILY
     Dates: start: 20060919, end: 20061011
  8. TEBOFORTAN [Suspect]
     Dosage: 40-120MG DAILY.
     Dates: start: 20060928, end: 20061003

REACTIONS (11)
  - BACK PAIN [None]
  - BLOOD CREATININE INCREASED [None]
  - BLOOD LACTATE DEHYDROGENASE INCREASED [None]
  - COGWHEEL RIGIDITY [None]
  - DRUG TOXICITY [None]
  - EXTRAPYRAMIDAL DISORDER [None]
  - HAEMATURIA [None]
  - LEUKOCYTOSIS [None]
  - MYOGLOBIN BLOOD INCREASED [None]
  - RHABDOMYOLYSIS [None]
  - TRANSAMINASES INCREASED [None]
